FAERS Safety Report 10370727 (Version 1)
Quarter: 2014Q3

REPORT INFORMATION
  Report Type: Spontaneous
  Country: US (occurrence: None)
  Receive Date: 20140807
  Receipt Date: 20140807
  Transmission Date: 20150326
  Serious: Yes (Hospitalization)
  Sender: FDA-Public Use
  Company Number: None

PATIENT
  Age: 70 Year
  Sex: Male
  Weight: 82 kg

DRUGS (20)
  1. SIROLIMUS. [Suspect]
     Active Substance: SIROLIMUS
     Indication: PLASMA CELL MYELOMA
     Dosage: 12 MG D-2 , 4MG D-1 TO 4
     Route: 048
     Dates: start: 20140713, end: 20140718
  2. LORAZEPAM. [Concomitant]
     Active Substance: LORAZEPAM
  3. MULTIVITAMIN [Concomitant]
     Active Substance: VITAMINS
  4. TRAVOPROST [Concomitant]
     Active Substance: TRAVOPROST
  5. MANNITOL. [Concomitant]
     Active Substance: MANNITOL
  6. LEVOFLOXACIN [Concomitant]
     Active Substance: LEVOFLOXACIN
  7. OMEPRAZOLE. [Concomitant]
     Active Substance: OMEPRAZOLE
  8. BENZALKONIUM [Concomitant]
     Active Substance: BENZALKONIUM
  9. ACYCLOVIR. [Concomitant]
     Active Substance: ACYCLOVIR
  10. LOPERAMIDE [Concomitant]
     Active Substance: LOPERAMIDE
  11. WATER. [Concomitant]
     Active Substance: WATER
  12. BACLOFEN. [Concomitant]
     Active Substance: BACLOFEN
  13. FLUCONAZOLE. [Concomitant]
     Active Substance: FLUCONAZOLE
  14. FOLIC ACID. [Concomitant]
     Active Substance: FOLIC ACID
  15. TAMSULOSIN [Concomitant]
     Active Substance: TAMSULOSIN
  16. ZOLEDRONIC ACID [Concomitant]
     Active Substance: ZOLEDRONIC ACID
  17. HYDROXYCHLOROQUINE [Suspect]
     Active Substance: HYDROXYCHLOROQUINE
     Indication: PLASMA CELL MYELOMA
     Route: 048
     Dates: start: 20140205, end: 20140724
  18. DIGOXIN. [Concomitant]
     Active Substance: DIGOXIN
  19. LISINOPRIL. [Concomitant]
     Active Substance: LISINOPRIL
  20. ONDANSETRON [Concomitant]
     Active Substance: ONDANSETRON

REACTIONS (3)
  - Musculoskeletal pain [None]
  - Pneumonia [None]
  - Staphylococcal infection [None]

NARRATIVE: CASE EVENT DATE: 20140721
